FAERS Safety Report 9451217 (Version 2)
Quarter: 2021Q3

REPORT INFORMATION
  Report Type: Spontaneous
  Country: NL (occurrence: NL)
  Receive Date: 20130809
  Receipt Date: 20210814
  Transmission Date: 20211014
  Serious: Yes (Death, Other)
  Sender: FDA-Public Use
  Company Number: NL-TEVA-422919ISR

PATIENT
  Age: 56 Year
  Sex: Male

DRUGS (4)
  1. STENTYS [PACLITAXEL] [Suspect]
     Active Substance: PACLITAXEL
     Indication: CORONARY ARTERY STENOSIS
     Dosage: DRUG?ELUTING STENT
     Route: 050
  2. HEPARIN [Concomitant]
     Active Substance: HEPARIN SODIUM
     Route: 065
  3. ASPIRIN. [Concomitant]
     Active Substance: ASPIRIN
     Route: 065
  4. CLOPIDOGREL [Concomitant]
     Active Substance: CLOPIDOGREL BISULFATE
     Route: 065

REACTIONS (2)
  - Cardiogenic shock [Fatal]
  - Vascular stent thrombosis [Not Recovered/Not Resolved]
